FAERS Safety Report 9033143 (Version 2)
Quarter: 2013Q2

REPORT INFORMATION
  Report Type: Spontaneous
  Country: FR (occurrence: FR)
  Receive Date: 20130128
  Receipt Date: 20130423
  Transmission Date: 20140414
  Serious: Yes (Other)
  Sender: FDA-Public Use
  Company Number: FR-PFIZER INC-2013020336

PATIENT
  Age: 11 Year
  Sex: Female

DRUGS (4)
  1. HYDROXYZINE HCL [Suspect]
     Dosage: UNK
  2. LIDOCAINE HCL [Suspect]
     Dosage: UNK
  3. TRAMADOL HYDROCHLORIDE AUROBINDO [Suspect]
     Dosage: UNK
  4. CETIRIZINE HYDROCHLORIDE [Suspect]
     Dosage: UNK

REACTIONS (1)
  - Chemical submission [Unknown]
